FAERS Safety Report 20767227 (Version 2)
Quarter: 2022Q2

REPORT INFORMATION
  Report Type: Other
  Country: US (occurrence: None)
  Receive Date: 20220429
  Receipt Date: 20220509
  Transmission Date: 20220721
  Serious: Yes (Hospitalization)
  Sender: FDA-Public Use
  Company Number: US-ROCHE-3071696

PATIENT
  Age: 70 Year
  Sex: Male
  Weight: 83.581 kg

DRUGS (11)
  1. OCREVUS [Suspect]
     Active Substance: OCRELIZUMAB
     Indication: Secondary progressive multiple sclerosis
     Dosage: INJECT INTO THE VEIN ONCE FOR 1 DOSE
     Route: 042
     Dates: start: 20180206
  2. ACETAMINOPHEN [Concomitant]
     Active Substance: ACETAMINOPHEN
  3. AMOXICILLIN [Concomitant]
     Active Substance: AMOXICILLIN
  4. ASPIRIN [Concomitant]
     Active Substance: ASPIRIN
  5. ATENOLOL [Concomitant]
     Active Substance: ATENOLOL
  6. ATORVASTATIN [Concomitant]
     Active Substance: ATORVASTATIN
  7. BACLOFEN [Concomitant]
     Active Substance: BACLOFEN
  8. CHOLECALCIFEROL [Concomitant]
     Active Substance: CHOLECALCIFEROL
  9. SITAGLIPTIN [Concomitant]
     Active Substance: SITAGLIPTIN
  10. IBUPROFEN [Concomitant]
     Active Substance: IBUPROFEN
  11. METFORMIN [Concomitant]
     Active Substance: METFORMIN HYDROCHLORIDE

REACTIONS (3)
  - Localised infection [Recovered/Resolved]
  - Cellulitis [Unknown]
  - Pain [Unknown]

NARRATIVE: CASE EVENT DATE: 20220311
